FAERS Safety Report 5691297-9 (Version None)
Quarter: 2008Q1

REPORT INFORMATION
  Report Type: 
  Country: None (occurrence: None)
  Receive Date: 20080331
  Receipt Date: 20080313
  Transmission Date: 20080703
  Serious: No
  Sender: FDA-Public Use
  Company Number: 002#2#2008-00115

PATIENT
  Age: 68 Year
  Sex: Female

DRUGS (7)
  1. NEUPRO [Suspect]
     Indication: PARKINSON'S DISEASE
     Dosage: 2MG/24H,1 IN 2 D,TRANSDERMAL;  4MG/24H,1 IN 1 D,TRANSDERMAL; 6MG/24H,1 IN 1 D,TRANSDERMAL
     Route: 062
     Dates: start: 20071201, end: 20071201
  2. NEUPRO [Suspect]
     Indication: PARKINSON'S DISEASE
     Dosage: 2MG/24H,1 IN 2 D,TRANSDERMAL;  4MG/24H,1 IN 1 D,TRANSDERMAL; 6MG/24H,1 IN 1 D,TRANSDERMAL
     Route: 062
     Dates: start: 20080101, end: 20080101
  3. NEUPRO [Suspect]
     Indication: PARKINSON'S DISEASE
     Dosage: 2MG/24H,1 IN 2 D,TRANSDERMAL;  4MG/24H,1 IN 1 D,TRANSDERMAL; 6MG/24H,1 IN 1 D,TRANSDERMAL
     Route: 062
     Dates: start: 20080101
  4. STOMATITS [Concomitant]
  5. ATENOLOL [Concomitant]
  6. AZILECT [Concomitant]
  7. PREMARIN [Concomitant]

REACTIONS (4)
  - APPLICATION SITE ERYTHEMA [None]
  - APPLICATION SITE PRURITUS [None]
  - NO THERAPEUTIC RESPONSE [None]
  - PHARMACEUTICAL PRODUCT COMPLAINT [None]
